FAERS Safety Report 6270903-4 (Version None)
Quarter: 2009Q3

REPORT INFORMATION
  Report Type: 
  Country: None (occurrence: None)
  Receive Date: 20090715
  Receipt Date: 20090618
  Transmission Date: 20100115
  Serious: Yes (Other)
  Sender: FDA-Public Use
  Company Number: MC200900248

PATIENT

DRUGS (2)
  1. ANGIOMAX [Suspect]
  2. ASPIRIN [Concomitant]

REACTIONS (2)
  - SHOCK [None]
  - THROMBOSIS IN DEVICE [None]
